FAERS Safety Report 7625716-5 (Version None)
Quarter: 2011Q3

REPORT INFORMATION
  Report Type: 
  Country: None (occurrence: None)
  Receive Date: 20110721
  Receipt Date: 20110712
  Transmission Date: 20111222
  Serious: Yes (Death, Hospitalization)
  Sender: FDA-Public Use
  Company Number: NL-MILLENNIUM PHARMACEUTICALS, INC.-2011-03012

PATIENT

DRUGS (3)
  1. BUTRANS [Concomitant]
     Dosage: UNK
     Route: 062
     Dates: start: 20110513, end: 20110607
  2. VELCADE [Suspect]
     Indication: MULTIPLE MYELOMA
     Dosage: 1.3 MG/M2, UNK
     Route: 042
     Dates: start: 20110530
  3. PRIMPERAN                          /00041901/ [Concomitant]
     Dosage: 10 MG, UNK
     Route: 048
     Dates: start: 20110607, end: 20110607

REACTIONS (1)
  - ILEUS [None]
